FAERS Safety Report 8777952 (Version 1)
Quarter: 2012Q4

REPORT INFORMATION
  Report Type: 
  Country: ZA (occurrence: ZA)
  Receive Date: 20120912
  Receipt Date: 20120912
  Transmission Date: 20130627
  Serious: Yes (Other)
  Sender: FDA-Public Use
  Company Number: PHHY2012ZA079108

PATIENT
  Sex: Female

DRUGS (7)
  1. VERAHEXAL [Suspect]
     Indication: HYPERTENSION
     Dates: start: 2000
  2. ARCOXIA [Concomitant]
  3. PURINDA [Concomitant]
     Indication: HYPERTENSION
  4. AMLOC [Concomitant]
     Indication: HYPERTENSION
  5. CYLIFT [Concomitant]
     Dosage: UNK
     Dates: start: 2000
  6. CYLIFT [Concomitant]
     Dosage: 2 DF, daily
     Dates: start: 2012
  7. TREPILINE [Concomitant]

REACTIONS (1)
  - Osteoporosis [Unknown]
